FAERS Safety Report 8956373 (Version 1)
Quarter: 2012Q4

REPORT INFORMATION
  Report Type: 
  Country: US (occurrence: US)
  Receive Date: 20121210
  Receipt Date: 20121210
  Transmission Date: 20130627
  Serious: No
  Sender: FDA-Public Use
  Company Number: US-ASTRAZENECA-2012SE86343

PATIENT
  Age: 49 Year
  Sex: Female
  Weight: 60.8 kg

DRUGS (2)
  1. SYMBICORT [Suspect]
     Indication: CHRONIC OBSTRUCTIVE PULMONARY DISEASE
     Dosage: 160/4.5 MCG TWO PUFFS BID
     Route: 055
     Dates: start: 2008
  2. SYMBICORT [Suspect]
     Indication: ASTHMA
     Dosage: 160/4.5 MCG TWO PUFFS BID
     Route: 055
     Dates: start: 2008

REACTIONS (2)
  - Dyspnoea [Not Recovered/Not Resolved]
  - Drug dose omission [Unknown]
